FAERS Safety Report 18986875 (Version 1)
Quarter: 2021Q1

REPORT INFORMATION
  Report Type: Spontaneous
  Country: US (occurrence: US)
  Receive Date: 20210309
  Receipt Date: 20210309
  Transmission Date: 20210420
  Serious: No
  Sender: FDA-Public Use
  Company Number: US-PFIZER INC-2021233774

PATIENT
  Age: 64 Year
  Sex: Female
  Weight: 65.71 kg

DRUGS (13)
  1. IBRANCE [Suspect]
     Active Substance: PALBOCICLIB
     Indication: BREAST CANCER
     Dosage: 125 MG, CYCLIC (DAILY, 21 DAYS, 7 DAYS OFF)
     Route: 048
     Dates: start: 20210114
  2. POTASSIUM [Concomitant]
     Active Substance: POTASSIUM
  3. LETROZOLE. [Concomitant]
     Active Substance: LETROZOLE
  4. ZINC. [Concomitant]
     Active Substance: ZINC
  5. VITAMIN B2 [Concomitant]
     Active Substance: RIBOFLAVIN
  6. MAGNESIUM [Concomitant]
     Active Substance: MAGNESIUM
  7. CALCIUM [Concomitant]
     Active Substance: CALCIUM
  8. LORAZEPAM. [Concomitant]
     Active Substance: LORAZEPAM
  9. SELENIUM [Concomitant]
     Active Substance: SELENIUM
  10. VITAMIN B12 [Concomitant]
     Active Substance: CYANOCOBALAMIN
  11. VITAMIN D2 [Concomitant]
     Active Substance: ERGOCALCIFEROL
  12. VITAMIN D3 [Concomitant]
     Active Substance: CHOLECALCIFEROL
  13. OXYCODONE [Concomitant]
     Active Substance: OXYCODONE

REACTIONS (2)
  - White blood cell count decreased [Recovered/Resolved]
  - Asthenia [Recovered/Resolved]

NARRATIVE: CASE EVENT DATE: 2021
